FAERS Safety Report 7371806-4 (Version None)
Quarter: 2011Q1

REPORT INFORMATION
  Report Type: 
  Country: None (occurrence: None)
  Receive Date: 20110324
  Receipt Date: 20110314
  Transmission Date: 20110831
  Serious: Yes (Hospitalization)
  Sender: FDA-Public Use
  Company Number: JP-JNJFOC-20100608450

PATIENT
  Sex: Female
  Weight: 65 kg

DRUGS (20)
  1. SEROTONE [Concomitant]
     Route: 042
  2. DECADRON [Concomitant]
     Route: 048
  3. DECADRON [Concomitant]
     Route: 042
  4. MUCOSTA [Concomitant]
     Indication: PROPHYLAXIS
     Route: 048
  5. AZUNOL [Concomitant]
     Indication: STOMATITIS
     Route: 048
  6. CINAL [Concomitant]
     Indication: PIGMENTATION DISORDER
     Route: 048
  7. DOXIL [Suspect]
     Indication: OVARIAN CANCER RECURRENT
     Route: 042
  8. DECADRON [Concomitant]
     Route: 048
  9. LOXONIN [Concomitant]
     Indication: INTERSTITIAL LUNG DISEASE
     Dosage: AS NEEDED.
     Route: 048
  10. SEROTONE [Concomitant]
     Indication: PROPHYLAXIS
     Route: 042
  11. FOIPAN [Concomitant]
     Indication: STOMATITIS
     Route: 002
  12. ASCORBIC ACID [Concomitant]
     Route: 065
  13. DECADRON [Concomitant]
     Indication: PROPHYLAXIS
     Route: 042
  14. DECADRON [Concomitant]
     Route: 048
  15. BROTIZOLAM [Concomitant]
     Route: 065
  16. DOXIL [Suspect]
     Route: 042
  17. DECADRON [Concomitant]
     Route: 048
  18. PYDOXAL [Concomitant]
     Indication: STOMATITIS
     Route: 048
  19. KERATINAMIN [Concomitant]
     Indication: PIGMENTATION DISORDER
     Route: 061
  20. LOPEMIN [Concomitant]
     Indication: PROPHYLAXIS
     Route: 048

REACTIONS (1)
  - INTERSTITIAL LUNG DISEASE [None]
